FAERS Safety Report 4892876-9 (Version None)
Quarter: 2005Q4

REPORT INFORMATION
  Report Type: 
  Country: None (occurrence: None)
  Receive Date: 20051220
  Receipt Date: 20050907
  Transmission Date: 20060501
  Serious: Yes (Other)
  Sender: FDA-Public Use
  Company Number: 417437

PATIENT
  Sex: Female

DRUGS (2)
  1. BONIVA [Suspect]
     Indication: DRUG USE FOR UNKNOWN INDICATION
     Dates: start: 20050905
  2. PREDNISONE [Concomitant]

REACTIONS (4)
  - ARTHRALGIA [None]
  - BONE PAIN [None]
  - CHEST PAIN [None]
  - INFLUENZA LIKE ILLNESS [None]
